FAERS Safety Report 11047459 (Version 1)
Quarter: 2015Q2

REPORT INFORMATION
  Report Type: Spontaneous
  Country: US (occurrence: US)
  Receive Date: 20150420
  Receipt Date: 20150420
  Transmission Date: 20150821
  Serious: No
  Sender: FDA-Public Use
  Company Number: US-BIOGENIDEC-2015BI050854

PATIENT
  Sex: Female

DRUGS (1)
  1. TYSABRI [Suspect]
     Active Substance: NATALIZUMAB
     Indication: MULTIPLE SCLEROSIS
     Route: 042
     Dates: start: 20090507, end: 20090605

REACTIONS (4)
  - Mobility decreased [Not Recovered/Not Resolved]
  - Dysstasia [Unknown]
  - Increased tendency to bruise [Not Recovered/Not Resolved]
  - Weight bearing difficulty [Not Recovered/Not Resolved]
